FAERS Safety Report 4279465-4 (Version None)
Quarter: 2004Q1

REPORT INFORMATION
  Report Type: 
  Country: None (occurrence: None)
  Receive Date: 20040127
  Receipt Date: 20040113
  Transmission Date: 20041129
  Serious: Yes (Death, Hospitalization)
  Sender: FDA-Public Use
  Company Number: US-GLAXOSMITHKLINE-A0494540A

PATIENT
  Age: 58 Year
  Sex: Female

DRUGS (9)
  1. FLOLAN [Suspect]
     Indication: PULMONARY HYPERTENSION
     Route: 042
  2. WARFARIN SODIUM [Concomitant]
     Route: 065
  3. FUROSEMIDE [Concomitant]
     Route: 065
  4. MULTI-VITAMIN [Concomitant]
     Route: 065
  5. HYDROCHLOROTHIAZIDE [Concomitant]
     Route: 065
  6. FEXOFENADINE [Concomitant]
     Route: 065
  7. ROXICET [Concomitant]
     Route: 065
  8. LORAZEPAM [Concomitant]
     Route: 065
  9. CITALOPRAM [Concomitant]
     Route: 065

REACTIONS (3)
  - EXSANGUINATION [None]
  - HAEMOPTYSIS [None]
  - PULMONARY HAEMORRHAGE [None]
